FAERS Safety Report 16822454 (Version 12)
Quarter: 2021Q3

REPORT INFORMATION
  Report Type: Spontaneous
  Country: US (occurrence: US)
  Receive Date: 20190918
  Receipt Date: 20210831
  Transmission Date: 20211014
  Serious: Yes (Other)
  Sender: FDA-Public Use
  Company Number: US-PFIZER INC-2019399892

PATIENT
  Age: 70 Year
  Sex: Female

DRUGS (2)
  1. IBRANCE [Suspect]
     Active Substance: PALBOCICLIB
     Indication: BREAST CANCER FEMALE
     Dosage: 100 MG
  2. ERIBULIN [Concomitant]
     Active Substance: ERIBULIN
     Dosage: UNK

REACTIONS (17)
  - Eye pain [Unknown]
  - Weight increased [Unknown]
  - Abdominal discomfort [Unknown]
  - Fatigue [Unknown]
  - Breath odour [Unknown]
  - Limb discomfort [Unknown]
  - Waist circumference increased [Unknown]
  - Lacrimal disorder [Unknown]
  - Nausea [Unknown]
  - Haemoglobin decreased [Not Recovered/Not Resolved]
  - Aphasia [Unknown]
  - Pain in extremity [Unknown]
  - Asthenia [Unknown]
  - Dyspnoea [Unknown]
  - Eyelid pain [Unknown]
  - Neoplasm progression [Unknown]
  - Blood pressure abnormal [Unknown]
